FAERS Safety Report 5930409-6 (Version None)
Quarter: 2008Q4

REPORT INFORMATION
  Report Type: 
  Country: None (occurrence: None)
  Receive Date: 20081021
  Receipt Date: 20081007
  Transmission Date: 20090506
  Serious: Yes (Hospitalization)
  Sender: FDA-Public Use
  Company Number: 2008002669

PATIENT
  Sex: Female

DRUGS (2)
  1. TARCEVA [Suspect]
     Indication: LUNG CANCER METASTATIC
     Dosage: (150 MG, QD), ORAL
     Route: 048
     Dates: start: 20080901
  2. IV FLUIDS [Concomitant]

REACTIONS (5)
  - DEHYDRATION [None]
  - FLUSHING [None]
  - PERICARDIAL EFFUSION [None]
  - PYREXIA [None]
  - RASH [None]
